FAERS Safety Report 11195821 (Version 1)
Quarter: 2015Q2

REPORT INFORMATION
  Report Type: Spontaneous
  Country: CA (occurrence: CA)
  Receive Date: 20150617
  Receipt Date: 20150617
  Transmission Date: 20150821
  Serious: Yes (Other)
  Sender: FDA-Public Use
  Company Number: CA-TEVA-571021ACC

PATIENT
  Age: 79 Year
  Sex: Female
  Weight: 83.99 kg

DRUGS (4)
  1. SYNTHROID [Concomitant]
     Active Substance: LEVOTHYROXINE SODIUM
     Dosage: UNKNOWN FORM STRENGTH
     Route: 065
  2. ZOPICLONE [Concomitant]
     Active Substance: ZOPICLONE
     Dosage: UNKNOWN FORM STRENGTH
     Route: 065
  3. QUININE [Suspect]
     Active Substance: QUININE
     Indication: MUSCLE SPASMS
     Route: 065
  4. LETROZOLE. [Concomitant]
     Active Substance: LETROZOLE
     Dosage: UNKNOWN FORM STRENGTH
     Route: 065

REACTIONS (4)
  - Headache [Unknown]
  - Visual impairment [Unknown]
  - Amaurosis fugax [Unknown]
  - Blindness [Unknown]
